FAERS Safety Report 23467810 (Version 1)
Quarter: 2024Q1

REPORT INFORMATION
  Report Type: Spontaneous
  Country: CA (occurrence: CA)
  Receive Date: 20240201
  Receipt Date: 20240201
  Transmission Date: 20240410
  Serious: Yes (Other)
  Sender: FDA-Public Use
  Company Number: CA-FreseniusKabi-FK202401755

PATIENT
  Age: 49 Year
  Sex: Female

DRUGS (3)
  1. ZOLEDRONIC ACID [Suspect]
     Active Substance: ZOLEDRONIC ACID
     Indication: Product used for unknown indication
     Dosage: FORM OF ADMIN-INJECTION
     Route: 051
  2. ZOLEDRONIC ACID [Suspect]
     Active Substance: ZOLEDRONIC ACID
     Dosage: FORM OF ADMIN: SOLUTION INTRAVENOUS
     Route: 051
  3. DOXYCYCLINE [Concomitant]
     Active Substance: DOXYCYCLINE
     Indication: Product used for unknown indication
     Dosage: FOA-NOT SPECIFIED

REACTIONS (2)
  - Blood pressure increased [Recovering/Resolving]
  - Lyme disease [Recovering/Resolving]
